FAERS Safety Report 8371943 (Version 2)
Quarter: 2013Q1

REPORT INFORMATION
  Report Type: Report from Study
  Country: PR (occurrence: PR)
  Receive Date: 20120129
  Receipt Date: 20130129
  Transmission Date: 20140127
  Serious: No
  Sender: FDA-Public Use
  Company Number: PR-ABBOTT-11P-131-0885036-00

PATIENT
  Age: 71 Year
  Sex: Female
  Weight: 56.75 kg

DRUGS (5)
  1. HUMIRA 40 MG/0.8 ML PEN [Suspect]
     Indication: RHEUMATOID ARTHRITIS
     Route: 058
     Dates: start: 2010, end: 20111216
  2. HUMIRA 40 MG/0.8 ML PEN [Suspect]
     Indication: PSORIASIS
     Route: 058
     Dates: start: 201201
  3. INDAPAMIDE [Concomitant]
     Indication: HYPERTENSION
     Route: 048
  4. LASIX [Concomitant]
     Indication: HYPERTENSION
     Route: 048
  5. MULTIVITAMIN [Concomitant]
     Indication: VITAMIN SUPPLEMENTATION
     Route: 048

REACTIONS (1)
  - Nasopharyngitis [Recovered/Resolved]
